FAERS Safety Report 5651123-0 (Version None)
Quarter: 2008Q1

REPORT INFORMATION
  Report Type: 
  Country: None (occurrence: None)
  Receive Date: 20080131
  Receipt Date: 20071207
  Transmission Date: 20080703
  Serious: No
  Sender: FDA-Public Use
  Company Number: US200712002474

PATIENT
  Age: 53 Year
  Sex: Male

DRUGS (4)
  1. BYETTA [Suspect]
     Indication: TYPE 2 DIABETES MELLITUS
     Dosage: 5 UG, 2/D, SUBCUTANEOUS ; 10 UG, 2/D, SUBCUTANEOU
     Route: 058
     Dates: start: 20060101, end: 20070101
  2. BYETTA [Suspect]
     Indication: TYPE 2 DIABETES MELLITUS
     Dosage: 5 UG, 2/D, SUBCUTANEOUS ; 10 UG, 2/D, SUBCUTANEOU
     Route: 058
     Dates: start: 20070101
  3. LISINOPRIL [Concomitant]
  4. METFORMIN HCL [Concomitant]

REACTIONS (3)
  - BLOOD PRESSURE INCREASED [None]
  - CHEST PAIN [None]
  - ERYTHEMA [None]
